FAERS Safety Report 21767787 (Version 1)
Quarter: 2022Q4

REPORT INFORMATION
  Report Type: Spontaneous
  Country: CN (occurrence: None)
  Receive Date: 20221222
  Receipt Date: 20221222
  Transmission Date: 20230112
  Serious: Yes (Other)
  Sender: FDA-Public Use
  Company Number: CN-Eisai Medical Research-EC-2022-130348

PATIENT
  Age: 59 Year
  Sex: Male

DRUGS (1)
  1. LENVATINIB [Suspect]
     Active Substance: LENVATINIB
     Indication: Hepatocellular carcinoma
     Dosage: UNKNOWN DOSE AND FREQUENCY
     Route: 048

REACTIONS (2)
  - Oesophageal varices haemorrhage [Unknown]
  - Arteriovenous fistula [Recovered/Resolved]
